FAERS Safety Report 18901734 (Version 2)
Quarter: 2021Q1

REPORT INFORMATION
  Report Type: Report from Study
  Country: DE (occurrence: DE)
  Receive Date: 20210216
  Receipt Date: 20210225
  Transmission Date: 20210420
  Serious: Yes (Hospitalization, Other)
  Sender: FDA-Public Use
  Company Number: NVSC2021DE035494

PATIENT
  Sex: Female
  Weight: 90 kg

DRUGS (17)
  1. JAKAVI [Suspect]
     Active Substance: RUXOLITINIB
     Indication: PRIMARY MYELOFIBROSIS
     Dosage: 40 MG PER DAY
     Route: 048
     Dates: start: 20190130, end: 20190213
  2. JAKAVI [Suspect]
     Active Substance: RUXOLITINIB
     Dosage: 10 MG PER DAY
     Route: 048
     Dates: start: 20190513, end: 20190521
  3. JAKAVI [Suspect]
     Active Substance: RUXOLITINIB
     Dosage: 25 MG PER DAY
     Route: 048
     Dates: start: 20190619, end: 20190625
  4. PANTOZOL [Concomitant]
     Active Substance: PANTOPRAZOLE SODIUM
     Indication: PROPHYLAXIS
     Dosage: 20 MG PER DAY
     Route: 065
     Dates: start: 20191205
  5. FOLIC ACID. [Concomitant]
     Active Substance: FOLIC ACID
     Indication: FOLATE DEFICIENCY
     Dosage: 5 MG PER DAY
     Route: 065
     Dates: start: 20200211, end: 20200401
  6. AMLODIPINE [Concomitant]
     Active Substance: AMLODIPINE BESYLATE
     Indication: HYPERTENSION
     Dosage: 5 MG PER DAY
     Route: 065
     Dates: start: 20190115, end: 20190901
  7. ROXITHROMYCIN [Concomitant]
     Active Substance: ROXITHROMYCIN
     Indication: BRONCHITIS
     Dosage: UNK PER DAY
     Route: 065
     Dates: start: 20190307, end: 20190324
  8. JAKAVI [Suspect]
     Active Substance: RUXOLITINIB
     Dosage: 15 MG PER DAY
     Route: 048
     Dates: start: 20190522, end: 20190606
  9. NOVAMIN [Concomitant]
     Indication: PAIN
     Dosage: 500 MG, PRN
     Route: 065
     Dates: start: 20190115, end: 20200526
  10. JAKAVI [Suspect]
     Active Substance: RUXOLITINIB
     Dosage: 20 MG PER DAY
     Route: 048
     Dates: start: 20190214, end: 20190512
  11. JAKAVI [Suspect]
     Active Substance: RUXOLITINIB
     Dosage: 20 MG PER DAY
     Route: 048
     Dates: start: 20190607, end: 20190618
  12. JAKAVI [Suspect]
     Active Substance: RUXOLITINIB
     Dosage: 20 MG PER DAY
     Route: 048
     Dates: start: 20200406, end: 20200527
  13. EXJADE [Suspect]
     Active Substance: DEFERASIROX
     Indication: IRON OVERLOAD
     Dosage: 90 MG PER DAY
     Route: 065
     Dates: start: 20191015, end: 20200110
  14. JAKAVI [Suspect]
     Active Substance: RUXOLITINIB
     Dosage: 30 MG PER DAY
     Route: 048
     Dates: start: 20190626, end: 20200405
  15. HYDROXYCARBAMIDE [Concomitant]
     Active Substance: HYDROXYUREA
     Indication: MYELOPROLIFERATIVE NEOPLASM
     Dosage: 500 MG PER DAY
     Route: 065
     Dates: start: 20180823, end: 20190214
  16. VALSARTAN HCT [Concomitant]
     Active Substance: HYDROCHLOROTHIAZIDE\VALSARTAN
     Indication: HYPERTENSION
     Dosage: 160/12.5 MG PER DAY
     Route: 065
     Dates: start: 20180928, end: 20190607
  17. CANDESARTAN. [Concomitant]
     Active Substance: CANDESARTAN
     Indication: HYPERTENSION
     Dosage: 16 MG PER DAY
     Route: 065
     Dates: start: 20190607, end: 20200701

REACTIONS (19)
  - Pneumonia [Unknown]
  - Pulmonary alveolar haemorrhage [Recovered/Resolved]
  - Haemoglobin decreased [Recovering/Resolving]
  - Cardiac failure [Recovered/Resolved]
  - Nausea [Unknown]
  - Renal failure [Recovered/Resolved]
  - Oedema [Unknown]
  - Restlessness [Unknown]
  - Iron overload [Unknown]
  - Tachyarrhythmia [Recovered/Resolved]
  - Blood uric acid increased [Not Recovered/Not Resolved]
  - Atrial fibrillation [Unknown]
  - Infection [Unknown]
  - Renal failure [Not Recovered/Not Resolved]
  - Weight increased [Not Recovered/Not Resolved]
  - Type 2 diabetes mellitus [Unknown]
  - Pyrexia [Unknown]
  - Pain [Unknown]
  - Transient ischaemic attack [Unknown]

NARRATIVE: CASE EVENT DATE: 20190325
